FAERS Safety Report 11111950 (Version 1)
Quarter: 2015Q2

REPORT INFORMATION
  Report Type: Spontaneous
  Country: US (occurrence: None)
  Receive Date: 20150512
  Receipt Date: 20150512
  Transmission Date: 20150821
  Serious: Yes (Other)
  Sender: FDA-Public Use
  Company Number: 2015JUB00126

PATIENT
  Age: 49 Year
  Sex: Female
  Weight: 65.8 kg

DRUGS (8)
  1. METHYLPREDNISOLONE. [Suspect]
     Active Substance: METHYLPREDNISOLONE
     Indication: TENDON OPERATION
     Dosage: AS DIRECTED
     Route: 048
     Dates: start: 20150427, end: 20150429
  2. ANTIVERT [Concomitant]
     Active Substance: MECLIZINE HYDROCHLORIDE
  3. METHYLPREDNISOLONE. [Suspect]
     Active Substance: METHYLPREDNISOLONE
     Indication: PROCEDURAL PAIN
     Dosage: AS DIRECTED
     Route: 048
     Dates: start: 20150427, end: 20150429
  4. ATIVAN [Concomitant]
     Active Substance: LORAZEPAM
  5. UNSPECIFIED VERTIGO MEDICATION [Concomitant]
  6. METHYLPREDNISOLONE. [Suspect]
     Active Substance: METHYLPREDNISOLONE
     Indication: SWELLING
     Dosage: AS DIRECTED
     Route: 048
     Dates: start: 20150427, end: 20150429
  7. ALLERGY SHOTS [Concomitant]
     Active Substance: UNSPECIFIED INGREDIENT
  8. PERCOCET [Concomitant]
     Active Substance: ACETAMINOPHEN\OXYCODONE HYDROCHLORIDE

REACTIONS (5)
  - Dyspnoea [None]
  - Abdominal distension [None]
  - Swelling [None]
  - Abdominal pain upper [None]
  - Swelling face [None]

NARRATIVE: CASE EVENT DATE: 20150427
